FAERS Safety Report 8824325 (Version 1)
Quarter: 2012Q4

REPORT INFORMATION
  Report Type: Report from Study
  Country: SK (occurrence: SK)
  Receive Date: 20121004
  Receipt Date: 20121004
  Transmission Date: 20130627
  Serious: Yes (Hospitalization, Other)
  Sender: FDA-Public Use
  Company Number: DE-UCBSA-028605

PATIENT
  Age: 83 Year
  Sex: Female
  Weight: 66 kg

DRUGS (14)
  1. NEUPRO [Suspect]
     Indication: PARKINSON^S DISEASE
     Route: 062
     Dates: start: 20100413, end: 20100419
  2. NEUPRO [Suspect]
     Indication: PARKINSON^S DISEASE
     Route: 062
     Dates: start: 20100420, end: 20100426
  3. NEUPRO [Suspect]
     Indication: PARKINSON^S DISEASE
     Route: 062
     Dates: start: 20100427
  4. IPATON [Concomitant]
     Indication: MYOCARDIAL ISCHAEMIA
  5. ATACAND PLUS [Concomitant]
     Indication: HYPERTENSION
  6. LOCREN [Concomitant]
     Indication: HYPERTENSION
  7. EBRANTIL [Concomitant]
     Indication: HYPERTENSION
     Dosage: AS REQUIRED
  8. ATILEN [Concomitant]
     Indication: HYPERTENSION
  9. IBALGIN [Concomitant]
     Indication: MUSCULOSKELETAL PAIN
     Dosage: AS REQUIRED
  10. PANGROL [Concomitant]
     Indication: PANCREATITIS CHRONIC
     Dosage: AS REQUIRED
  11. NITROGLYCERIN [Concomitant]
     Indication: MYOCARDIAL ISCHAEMIA
     Dosage: ORALLY DISINTEGRATED TABLETS AS REQUIRED
     Route: 048
  12. ALGIFEN [Concomitant]
     Indication: PAIN
     Dosage: FORM: DROPS AS REQUIRED
  13. LEXAURIN [Concomitant]
     Indication: MUSCULOSKELETAL PAIN
     Dosage: AS REQUIRED
  14. AMLOPIN [Concomitant]
     Indication: HYPERTENSION

REACTIONS (1)
  - Dehydration [Recovered/Resolved]
